FAERS Safety Report 12430432 (Version 1)
Quarter: 2016Q2

REPORT INFORMATION
  Report Type: Spontaneous
  Country: US (occurrence: US)
  Receive Date: 20160602
  Receipt Date: 20160602
  Transmission Date: 20160815
  Serious: Yes (Other)
  Sender: FDA-Public Use
  Company Number: US-TEVA-662669USA

PATIENT
  Age: 36 Year
  Sex: Male

DRUGS (1)
  1. COPAXONE [Suspect]
     Active Substance: GLATIRAMER ACETATE
     Indication: MULTIPLE SCLEROSIS
     Dosage: UNKNOWN FORM STRENGTH
     Route: 065

REACTIONS (10)
  - Drug ineffective [Unknown]
  - Hypoaesthesia [Unknown]
  - Fatigue [Unknown]
  - Depression [Unknown]
  - Mental impairment [Unknown]
  - Central nervous system lesion [Unknown]
  - CSF oligoclonal band present [Unknown]
  - Aphasia [Unknown]
  - Cognitive disorder [Unknown]
  - Asthenia [Unknown]
